FAERS Safety Report 22631374 (Version 6)
Quarter: 2024Q4

REPORT INFORMATION
  Report Type: Report from Study
  Country: GB (occurrence: GB)
  Receive Date: 20230623
  Receipt Date: 20241114
  Transmission Date: 20250114
  Serious: Yes (Other)
  Sender: NOVARTIS
  Company Number: GB-002147023-NVSC2023GB138942

PATIENT
  Age: 76 Year
  Sex: Male
  Weight: 90 kg

DRUGS (7)
  1. PLUVICTO [Suspect]
     Active Substance: LUTETIUM LU-177 VIPIVOTIDE TETRAXETAN
     Indication: Hormone-refractory prostate cancer
     Dosage: UNK, EVERY 6 WEEKS (CYCLE 1)
     Route: 042
     Dates: start: 20230104, end: 20230104
  2. PLUVICTO [Suspect]
     Active Substance: LUTETIUM LU-177 VIPIVOTIDE TETRAXETAN
     Dosage: UNK, EVERY 6 WEEKS (CYCLE 2)
     Route: 042
  3. PLUVICTO [Suspect]
     Active Substance: LUTETIUM LU-177 VIPIVOTIDE TETRAXETAN
     Dosage: UNK, EVERY 6 WEEKS (CYCLE 3)
     Route: 042
  4. PLUVICTO [Suspect]
     Active Substance: LUTETIUM LU-177 VIPIVOTIDE TETRAXETAN
     Dosage: 7400 MBQ, EVERY 6 WEEKS (CYCLE 4)
     Route: 042
     Dates: start: 20230517, end: 20230517
  5. PLUVICTO [Suspect]
     Active Substance: LUTETIUM LU-177 VIPIVOTIDE TETRAXETAN
     Dosage: UNK, EVERY 6 WEEKS (CYCLE 5)
     Route: 042
  6. PLUVICTO [Suspect]
     Active Substance: LUTETIUM LU-177 VIPIVOTIDE TETRAXETAN
     Dosage: UNK, EVERY 6 WEEKS (CYCLE 6)
     Route: 042
     Dates: start: 20230809, end: 20230809
  7. SODIUM CHLORIDE [Concomitant]
     Active Substance: SODIUM CHLORIDE
     Indication: Product used for unknown indication
     Dosage: UNK (6 WEEKS)
     Route: 042

REACTIONS (6)
  - Infusion site extravasation [Recovered/Resolved]
  - Swelling [Recovered/Resolved]
  - Skin disorder [Unknown]
  - Pain [Unknown]
  - Drug clearance decreased [Unknown]
  - Erythema [Unknown]

NARRATIVE: CASE EVENT DATE: 20230517
